FAERS Safety Report 17544952 (Version 2)
Quarter: 2020Q2

REPORT INFORMATION
  Report Type: Spontaneous
  Country: US (occurrence: US)
  Receive Date: 20200316
  Receipt Date: 20200427
  Transmission Date: 20200713
  Serious: No
  Sender: FDA-Public Use
  Company Number: US-PFIZER INC-2020111689

PATIENT
  Age: 57 Year
  Sex: Female
  Weight: 68.03 kg

DRUGS (1)
  1. XELJANZ [Suspect]
     Active Substance: TOFACITINIB CITRATE
     Indication: RHEUMATOID ARTHRITIS
     Dosage: 5 MG, 2X/DAY [5MG BID (TWO TIMES A DAY)]
     Route: 048
     Dates: start: 20180616

REACTIONS (1)
  - Herpes zoster [Recovering/Resolving]
